FAERS Safety Report 5566186-0 (Version None)
Quarter: 2007Q4

REPORT INFORMATION
  Report Type: 
  Country: None (occurrence: None)
  Receive Date: 20071219
  Receipt Date: 20070802
  Transmission Date: 20080405
  Serious: No
  Sender: FDA-Public Use
  Company Number: US-KINGPHARMUSA00001-K200700978

PATIENT

DRUGS (2)
  1. APLISOL [Suspect]
     Indication: TUBERCULIN TEST
     Dosage: UNK, SINGLE
     Dates: start: 20070801, end: 20070801
  2. APLISOL [Suspect]
     Dosage: UNK, SINGLE
     Dates: start: 20070726, end: 20070726

REACTIONS (3)
  - HYPERSENSITIVITY [None]
  - INJECTION SITE ERYTHEMA [None]
  - LOCALISED OEDEMA [None]
